FAERS Safety Report 10913781 (Version 2)
Quarter: 2015Q2

REPORT INFORMATION
  Report Type: Spontaneous
  Country: US (occurrence: US)
  Receive Date: 20150313
  Receipt Date: 20150526
  Transmission Date: 20150821
  Serious: Yes (Other)
  Sender: FDA-Public Use
  Company Number: US-JNJFOC-20140103114

PATIENT
  Age: 71 Year
  Sex: Female

DRUGS (2)
  1. LOTENSIN [Concomitant]
     Active Substance: BENAZEPRIL HYDROCHLORIDE
     Indication: BLOOD PRESSURE
     Dosage: ONE IN AM AND ONE IN PM
     Route: 048
     Dates: start: 1992
  2. PARAFON FORTE [Suspect]
     Active Substance: CHLORZOXAZONE
     Indication: PAIN
     Dosage: 50 MG/ 500 MG
     Route: 048
     Dates: start: 1974

REACTIONS (7)
  - Osteoporosis [Not Recovered/Not Resolved]
  - Sciatica [Not Recovered/Not Resolved]
  - Spinal column injury [Unknown]
  - Thrombosis [Not Recovered/Not Resolved]
  - Body height decreased [Not Recovered/Not Resolved]
  - Road traffic accident [Unknown]
  - Osteoarthritis [Unknown]

NARRATIVE: CASE EVENT DATE: 1991
